FAERS Safety Report 13917938 (Version 1)
Quarter: 2017Q3

REPORT INFORMATION
  Report Type: Spontaneous
  Country: US (occurrence: US)
  Receive Date: 20170829
  Receipt Date: 20170829
  Transmission Date: 20171127
  Serious: No
  Sender: FDA-Public Use
  Company Number: US-SA-2016SA160161

PATIENT
  Sex: Male

DRUGS (2)
  1. FABRAZYME [Suspect]
     Active Substance: AGALSIDASE BETA
     Route: 041
  2. FABRAZYME [Suspect]
     Active Substance: AGALSIDASE BETA
     Dosage: MISSED DOSE
     Route: 041
     Dates: start: 20100316

REACTIONS (1)
  - Malaise [Unknown]
